FAERS Safety Report 12493462 (Version 1)
Quarter: 2016Q2

REPORT INFORMATION
  Report Type: Spontaneous
  Country: DE (occurrence: DE)
  Receive Date: 20160623
  Receipt Date: 20160623
  Transmission Date: 20160815
  Serious: Yes (Other)
  Sender: FDA-Public Use
  Company Number: DE-TEVA-670102GER

PATIENT
  Sex: Male

DRUGS (3)
  1. CARVEDILOL 25 MG [Concomitant]
     Active Substance: CARVEDILOL
  2. LISINOPRIL 10 MG [Suspect]
     Active Substance: LISINOPRIL
     Route: 048
  3. SPIRONOLACTON [Concomitant]
     Active Substance: SPIRONOLACTONE

REACTIONS (3)
  - Limb discomfort [Not Recovered/Not Resolved]
  - Muscle hypertrophy [Not Recovered/Not Resolved]
  - Muscle disorder [Not Recovered/Not Resolved]
